FAERS Safety Report 14615908 (Version 3)
Quarter: 2018Q2

REPORT INFORMATION
  Report Type: Spontaneous
  Country: FR (occurrence: FR)
  Receive Date: 20180309
  Receipt Date: 20180411
  Transmission Date: 20180711
  Serious: Yes (Hospitalization, Disabling, Other)
  Sender: FDA-Public Use
  Company Number: FR-ORION CORPORATION ORION PHARMA-TREX2018-0660

PATIENT
  Age: 66 Year
  Sex: Male

DRUGS (4)
  1. SPECIAFOLDINE [Concomitant]
     Active Substance: FOLIC ACID
     Indication: POLYMYALGIA RHEUMATICA
     Dosage: STRENGTH: 5 MG, FROM THURSDAY TO SUNDAY EVERY WEEK
     Route: 065
     Dates: start: 20161115, end: 201707
  2. OROKEN [Concomitant]
     Active Substance: CEFIXIME
     Indication: URINARY TRACT INFECTION ENTEROCOCCAL
     Route: 065
     Dates: start: 201707, end: 201708
  3. FURADANTINE [Concomitant]
     Active Substance: NITROFURANTOIN
     Indication: URINARY TRACT INFECTION ENTEROCOCCAL
     Route: 065
     Dates: start: 201707, end: 201708
  4. IMETH [Suspect]
     Active Substance: METHOTREXATE SODIUM
     Indication: POLYMYALGIA RHEUMATICA
     Route: 065
     Dates: start: 20161115, end: 201707

REACTIONS (5)
  - Endocarditis [Unknown]
  - Endocarditis enterococcal [Unknown]
  - Product use in unapproved indication [Unknown]
  - Mitral valve incompetence [Unknown]
  - Urinary tract infection enterococcal [Unknown]

NARRATIVE: CASE EVENT DATE: 20170720
